FAERS Safety Report 8912684 (Version 1)
Quarter: 2012Q4

REPORT INFORMATION
  Report Type: 
  Country: BR (occurrence: BR)
  Receive Date: 20121116
  Receipt Date: 20121116
  Transmission Date: 20130627
  Serious: Yes (Other)
  Sender: FDA-Public Use
  Company Number: BR-AMGEN-BRASP2012072429

PATIENT
  Age: 56 Year
  Sex: Female
  Weight: 62 kg

DRUGS (6)
  1. ENBREL [Suspect]
     Indication: RHEUMATOID ARTHRITIS
     Dosage: 50 mg, once weekly
     Route: 058
     Dates: start: 201210
  2. ENBREL [Suspect]
     Dosage: UNK
  3. BETASERC                           /00141801/ [Concomitant]
     Dosage: 16 mg, 1x/day
  4. CALCIUM [Concomitant]
     Dosage: one tablet, once daily
  5. METHOTREXATE [Concomitant]
     Dosage: 25 mg, once weekly
  6. PREDNISONE [Concomitant]
     Dosage: two tablets of 5mg daily, unspecified frequency

REACTIONS (6)
  - Bone disorder [Unknown]
  - Injection site mass [Unknown]
  - Erythema [Unknown]
  - Pruritus [Unknown]
  - Varicose vein [Unknown]
  - Injection site pain [Unknown]
